FAERS Safety Report 6734138-0 (Version None)
Quarter: 2010Q2

REPORT INFORMATION
  Report Type: 
  Country: None (occurrence: None)
  Receive Date: 20100520
  Receipt Date: 20100505
  Transmission Date: 20101027
  Serious: Yes (Other)
  Sender: FDA-Public Use
  Company Number: DE-GENENTECH-299517

PATIENT
  Sex: Male
  Weight: 95 kg

DRUGS (6)
  1. RITUXIMAB [Suspect]
     Indication: RHEUMATOID ARTHRITIS
     Dosage: 1000 MG, D1+15/Q6M
     Route: 042
     Dates: start: 20100225
  2. STEROID NOS [Concomitant]
     Indication: PREMEDICATION
     Dosage: 100 MG, UNK
  3. PARACETAMOL [Concomitant]
     Indication: PREMEDICATION
     Dosage: 1000 MG, UNK
  4. FENISTIL [Concomitant]
     Indication: PREMEDICATION
     Dosage: 4 MG, UNK
  5. IDEOS [Concomitant]
     Indication: PREMEDICATION
     Dosage: 500 MG, UNK
  6. PREDNISOLONE [Concomitant]
     Indication: DRUG USE FOR UNKNOWN INDICATION
     Dosage: UNK
     Dates: start: 20100201

REACTIONS (2)
  - CORONARY ARTERY DISEASE [None]
  - PRURITUS [None]
